FAERS Safety Report 5705353-X (Version None)
Quarter: 2008Q2

REPORT INFORMATION
  Report Type: 
  Country: None (occurrence: None)
  Receive Date: 20080415
  Receipt Date: 20080410
  Transmission Date: 20081010
  Serious: Yes (Hospitalization, Other)
  Sender: FDA-Public Use
  Company Number: US-BAYER-200819525NA

PATIENT
  Age: 18 Year
  Sex: Female

DRUGS (1)
  1. MIRENA [Suspect]
     Indication: CONTRACEPTION
     Route: 015
     Dates: start: 20070801, end: 20080409

REACTIONS (4)
  - ABDOMINAL PAIN LOWER [None]
  - IUCD COMPLICATION [None]
  - IUD MIGRATION [None]
  - VAGINAL HAEMORRHAGE [None]
